FAERS Safety Report 4302749-8 (Version None)
Quarter: 2004Q1

REPORT INFORMATION
  Report Type: 
  Country: None (occurrence: None)
  Receive Date: 20040220
  Receipt Date: 20040206
  Transmission Date: 20041129
  Serious: Yes (Hospitalization, Disabling, Other)
  Sender: FDA-Public Use
  Company Number: 2004008372

PATIENT
  Age: 56 Year
  Sex: Male
  Weight: 77.1115 kg

DRUGS (1)
  1. DILANTIN KAPSEAL [Suspect]
     Indication: GRAND MAL CONVULSION
     Dosage: 400 MG (DAILY), ORAL
     Route: 048
     Dates: start: 19920101

REACTIONS (3)
  - ARTHRALGIA [None]
  - INSOMNIA [None]
  - POST PROCEDURAL COMPLICATION [None]
